FAERS Safety Report 19596586 (Version 1)
Quarter: 2021Q3

REPORT INFORMATION
  Report Type: Spontaneous
  Country: FR (occurrence: FR)
  Receive Date: 20210722
  Receipt Date: 20210722
  Transmission Date: 20211014
  Serious: Yes (Other)
  Sender: FDA-Public Use
  Company Number: ALC2021FR004298

PATIENT

DRUGS (1)
  1. ATROPINE ALCON 0,5% COLLYRE [Suspect]
     Active Substance: ATROPINE
     Indication: FUNDOSCOPY
     Dosage: 1 DROP IN THE MORNING AND 1 IN THE EVENING
     Route: 047
     Dates: start: 20210703

REACTIONS (2)
  - Pyrexia [Unknown]
  - Wrong dose [Unknown]

NARRATIVE: CASE EVENT DATE: 20210703
